FAERS Safety Report 8684640 (Version 2)
Quarter: 2013Q4

REPORT INFORMATION
  Report Type: Spontaneous
  Country: FR (occurrence: FR)
  Receive Date: 20120726
  Receipt Date: 20131108
  Transmission Date: 20140711
  Serious: Yes (Hospitalization)
  Sender: FDA-Public Use
  Company Number: FR-009507513-1207FRA004706

PATIENT
  Age: 84 Year
  Sex: 0

DRUGS (7)
  1. ZOCOR 20MG [Suspect]
     Dosage: 10 MG, QD
     Route: 048
     Dates: end: 20120629
  2. TEMERIT [Concomitant]
  3. RILUTEK [Concomitant]
  4. PLAVIX [Concomitant]
  5. ZYLORIC [Concomitant]
  6. CHIBRO-PROSCAR [Concomitant]
  7. STILNOX [Concomitant]

REACTIONS (1)
  - Tendon rupture [Recovered/Resolved with Sequelae]
